FAERS Safety Report 8259793 (Version 7)
Quarter: 2013Q3

REPORT INFORMATION
  Report Type: Spontaneous
  Country: US (occurrence: US)
  Receive Date: 20111122
  Receipt Date: 20130923
  Transmission Date: 20140515
  Serious: Yes (Death, Hospitalization, Disabling, Other)
  Sender: FDA-Public Use
  Company Number: US-009507513-1111USA02616

PATIENT
  Sex: Female
  Weight: 52.16 kg

DRUGS (3)
  1. FOSAMAX [Suspect]
     Indication: OSTEOPOROSIS
     Dosage: 10 MG, UNK
     Route: 048
     Dates: start: 20000825
  2. FOSAMAX [Suspect]
     Dosage: 70 MG, QW
     Route: 048
     Dates: start: 20021115
  3. FOSAMAX [Suspect]
     Indication: OSTEOPOROSIS
     Route: 048

REACTIONS (77)
  - Carotid artery occlusion [Unknown]
  - Carotid artery occlusion [Unknown]
  - Fall [Unknown]
  - Rib fracture [Unknown]
  - Bronchitis [Unknown]
  - Hyponatraemia [Unknown]
  - Carotid artery stenosis [Unknown]
  - Skin ulcer [Unknown]
  - Bronchitis bacterial [Unknown]
  - Pneumonia bacterial [Unknown]
  - Insomnia [Unknown]
  - Gastrointestinal ulcer haemorrhage [Unknown]
  - Duodenal ulcer haemorrhage [Unknown]
  - Anaemia [Unknown]
  - Failure to thrive [Unknown]
  - Transient ischaemic attack [Unknown]
  - Chronic obstructive pulmonary disease [Fatal]
  - Hypokalaemia [Recovered/Resolved]
  - Cardiac failure congestive [Fatal]
  - Hyponatraemia [Recovered/Resolved]
  - Anaemia [Unknown]
  - Leukocytosis [Unknown]
  - Impaired healing [Unknown]
  - Asthenia [Not Recovered/Not Resolved]
  - Femur fracture [Not Recovered/Not Resolved]
  - Diarrhoea [Not Recovered/Not Resolved]
  - Transient ischaemic attack [Unknown]
  - Depression [Not Recovered/Not Resolved]
  - Anxiety [Not Recovered/Not Resolved]
  - Fracture [Unknown]
  - Carpal tunnel syndrome [Unknown]
  - Urinary tract infection [Unknown]
  - Bacterial vaginosis [Unknown]
  - Vaginal haemorrhage [Unknown]
  - Visual impairment [Unknown]
  - Fall [Unknown]
  - Contusion [Unknown]
  - Large intestine polyp [Unknown]
  - Diverticulum intestinal [Unknown]
  - Intracranial aneurysm [Unknown]
  - Nervousness [Unknown]
  - Adverse drug reaction [Unknown]
  - Aneurysm [Unknown]
  - Feeling jittery [Unknown]
  - Peripheral vascular disorder [Unknown]
  - Arteriosclerosis coronary artery [Not Recovered/Not Resolved]
  - Rib fracture [Unknown]
  - Radius fracture [Unknown]
  - Neuropathy peripheral [Unknown]
  - Arthritis [Unknown]
  - Fall [Unknown]
  - Contusion [Unknown]
  - Spinal compression fracture [Unknown]
  - Insomnia [Not Recovered/Not Resolved]
  - Obstructive airways disorder [Not Recovered/Not Resolved]
  - Cough [Unknown]
  - Cerumen impaction [Unknown]
  - Dementia [Not Recovered/Not Resolved]
  - Cough [Unknown]
  - Somatoform disorder [Unknown]
  - Tension headache [Unknown]
  - Insomnia [Unknown]
  - Dissociative disorder [Unknown]
  - Fatigue [Unknown]
  - Retinal disorder [Unknown]
  - Age-related macular degeneration [Unknown]
  - Malaise [Unknown]
  - Back pain [Unknown]
  - Rash [Unknown]
  - Diarrhoea [Unknown]
  - Gastrooesophageal reflux disease [Unknown]
  - Intramedullary rod insertion [Unknown]
  - Deafness bilateral [Unknown]
  - Cataract [Unknown]
  - Back pain [Unknown]
  - Fall [Unknown]
  - Asthenia [Unknown]
